FAERS Safety Report 12776403 (Version 1)
Quarter: 2016Q3

REPORT INFORMATION
  Report Type: Report from Study
  Country: US (occurrence: US)
  Receive Date: 20160923
  Receipt Date: 20160923
  Transmission Date: 20161109
  Serious: Yes (Hospitalization)
  Sender: FDA-Public Use
  Company Number: US-GILEAD-2016-0233730

PATIENT
  Age: 84 Year
  Sex: Male
  Weight: 78 kg

DRUGS (7)
  1. BONDORMIN [Concomitant]
     Active Substance: BROTIZOLAM
     Dosage: 0.250 MG, QD
  2. AQUA                               /00000901/ [Concomitant]
     Dosage: UNK, BID
  3. SOFOSBUVIR [Suspect]
     Active Substance: SOFOSBUVIR
     Indication: HEPATITIS C
     Dosage: 400 MG, QD
     Route: 065
     Dates: start: 20160713
  4. DAKLINZA [Suspect]
     Active Substance: DACLATASVIR
     Indication: HEPATITIS C
     Dosage: 60 MG, QD
     Route: 065
     Dates: start: 20160713
  5. AHISTON [Concomitant]
     Dosage: 2 MG, TID
  6. RIBAVIRIN. [Suspect]
     Active Substance: RIBAVIRIN
     Indication: HEPATITIS C
     Dosage: 3 DF, QD
     Route: 065
     Dates: start: 20160711, end: 20160904
  7. LYTEERS [Concomitant]
     Dosage: 3 DF, QD

REACTIONS (2)
  - Dermatitis [Unknown]
  - Drug eruption [Unknown]

NARRATIVE: CASE EVENT DATE: 20160911
